FAERS Safety Report 9924969 (Version 1)
Quarter: 2014Q1

REPORT INFORMATION
  Report Type: Spontaneous
  Country: IT (occurrence: IT)
  Receive Date: 20140226
  Receipt Date: 20140226
  Transmission Date: 20141002
  Serious: Yes (Death)
  Sender: FDA-Public Use
  Company Number: IT-SA-2014SA022591

PATIENT
  Age: 50 Year
  Sex: Male
  Weight: 90 kg

DRUGS (6)
  1. ZOLPIDEM TARTRATE [Suspect]
     Indication: SUICIDE ATTEMPT
     Dosage: 15X10 MG CP
     Route: 048
  2. MIDAZOLAM [Suspect]
     Indication: SUICIDE ATTEMPT
     Dosage: FOUR AMPOULES OF 5 MG/ML, INFUSION
     Route: 041
  3. THIOPENTAL SODIUM [Suspect]
     Indication: SUICIDE ATTEMPT
     Dosage: INFUSION; ONE VIAL OF 500 MG
     Route: 041
  4. AMITRIPTYLINE [Suspect]
     Indication: SUICIDE ATTEMPT
     Dosage: 40 MG
     Route: 065
  5. KETOPROFEN [Suspect]
     Indication: SUICIDE ATTEMPT
     Route: 065
  6. PROPOFOL [Suspect]
     Indication: SUICIDE ATTEMPT
     Dosage: FOUR AMPOULES: 200MG/20 ML PROPOFOL PER AMPULE, INFUSION
     Route: 041

REACTIONS (11)
  - Completed suicide [Fatal]
  - Toxicity to various agents [Fatal]
  - Left ventricular hypertrophy [Fatal]
  - Pulmonary oedema [Fatal]
  - Brain oedema [Fatal]
  - Visceral congestion [Fatal]
  - Hepatic steatosis [Fatal]
  - Pancreatitis haemorrhagic [Fatal]
  - Cardiac failure [Fatal]
  - Respiratory failure [Fatal]
  - Loss of consciousness [Fatal]
